FAERS Safety Report 7530028-4 (Version None)
Quarter: 2011Q2

REPORT INFORMATION
  Report Type: 
  Country: None (occurrence: None)
  Receive Date: 20110607
  Receipt Date: 20110525
  Transmission Date: 20111010
  Serious: Yes (Hospitalization)
  Sender: FDA-Public Use
  Company Number: PHHY2011IT46018

PATIENT
  Sex: Male

DRUGS (1)
  1. CLOZAPINE [Suspect]

REACTIONS (1)
  - PANCREATIC ENZYMES ABNORMAL [None]
